FAERS Safety Report 12178834 (Version 1)
Quarter: 2016Q1

REPORT INFORMATION
  Report Type: Spontaneous
  Country: US (occurrence: US)
  Receive Date: 20160314
  Receipt Date: 20160314
  Transmission Date: 20160526
  Serious: No
  Sender: FDA-Public Use
  Company Number: US-SA-2016SA009036

PATIENT
  Sex: Female

DRUGS (7)
  1. SOLOSTAR [Concomitant]
     Active Substance: DEVICE
     Dates: start: 20150911, end: 20151024
  2. ASA [Concomitant]
     Active Substance: ASPIRIN
  3. INVOKANA [Concomitant]
     Active Substance: CANAGLIFLOZIN
  4. LOSARTAN. [Concomitant]
     Active Substance: LOSARTAN
  5. TOUJEO [Suspect]
     Active Substance: INSULIN GLARGINE
     Indication: TYPE 2 DIABETES MELLITUS
     Dosage: DOSE:50 UNIT(S)
     Route: 058
     Dates: start: 20150911, end: 20151024
  6. LEVEMIR [Concomitant]
     Active Substance: INSULIN DETEMIR
  7. OMEGA 3 [Concomitant]
     Active Substance: OMEGA-3 FATTY ACIDS

REACTIONS (1)
  - Injection site pain [Recovered/Resolved]

NARRATIVE: CASE EVENT DATE: 20151010
